FAERS Safety Report 24765400 (Version 4)
Quarter: 2025Q1

REPORT INFORMATION
  Report Type: Report from Study
  Country: IN (occurrence: IN)
  Receive Date: 20241223
  Receipt Date: 20250226
  Transmission Date: 20250409
  Serious: Yes (Death, Hospitalization, Other)
  Sender: ROCHE
  Company Number: IN-ROCHE-10000078314

PATIENT
  Age: 67 Year
  Sex: Male

DRUGS (1)
  1. TECENTRIQ [Suspect]
     Active Substance: ATEZOLIZUMAB
     Indication: Small cell lung cancer
     Dosage: 6TH CYCLE INTERVAL: 18TH DAY?7TH CYCLE INTERVAL: 23RD DAY
     Route: 042
     Dates: start: 20240724

REACTIONS (7)
  - Abdominal pain upper [Not Recovered/Not Resolved]
  - Vital functions abnormal [Not Recovered/Not Resolved]
  - Off label use [Unknown]
  - Haemoglobin decreased [Unknown]
  - Red blood cell count decreased [Unknown]
  - Metastases to central nervous system [Unknown]
  - Death [Fatal]
